FAERS Safety Report 11112280 (Version 1)
Quarter: 2015Q2

REPORT INFORMATION
  Report Type: Spontaneous
  Country: US (occurrence: None)
  Receive Date: 20150512
  Receipt Date: 20150512
  Transmission Date: 20150821
  Serious: Yes (Other)
  Sender: FDA-Public Use
  Company Number: FK201502148

PATIENT
  Age: 18 Year

DRUGS (3)
  1. ETOPOSIDE (MANUFACTURER UNKNOWN) (ETOPOSIDE) (ETOPOSIDE) [Suspect]
     Active Substance: ETOPOSIDE
     Indication: ACUTE LYMPHOCYTIC LEUKAEMIA RECURRENT
     Dosage: 100 MG/M2, FOR DAYS 1-5
     Route: 042
  2. CYCLOPHOSPHAMIDE (MANUFACTURER UNKNOWN) (CYCLOPHOSPHAMIDE) (CYCLOPHOSPHAMIDE) [Suspect]
     Active Substance: CYCLOPHOSPHAMIDE
     Indication: ACUTE LYMPHOCYTIC LEUKAEMIA RECURRENT
     Dosage: 340 MG/M2, FOR DAYS 1-5
     Route: 042
  3. CLOFARABINE (CLOFARABINE) (CLOFARABINE) [Suspect]
     Active Substance: CLOFARABINE
     Indication: ACUTE LYMPHOCYTIC LEUKAEMIA RECURRENT
     Dosage: 30 MG/M2, FOR DAYS 1-5
     Route: 042

REACTIONS (2)
  - Rash [None]
  - Sinusitis [None]
